FAERS Safety Report 8800485 (Version 1)
Quarter: 2012Q4

REPORT INFORMATION
  Report Type: 
  Country: US (occurrence: US)
  Receive Date: 20120921
  Receipt Date: 20120921
  Transmission Date: 20130627
  Serious: Yes (Other)
  Sender: FDA-Public Use
  Company Number: US-ABBOTT-12P-163-0979933-00

PATIENT
  Sex: Female

DRUGS (1)
  1. HUMIRA PRE-FILLED SYRINGE [Suspect]
     Indication: PUSTULAR PSORIASIS
     Dates: start: 2009, end: 201209

REACTIONS (3)
  - Tuberculin test positive [Not Recovered/Not Resolved]
  - Off label use [Not Recovered/Not Resolved]
  - Latent tuberculosis [Not Recovered/Not Resolved]
